FAERS Safety Report 13880770 (Version 1)
Quarter: 2017Q3

REPORT INFORMATION
  Report Type: Spontaneous
  Country: US (occurrence: US)
  Receive Date: 20170818
  Receipt Date: 20170818
  Transmission Date: 20171127
  Serious: No
  Sender: FDA-Public Use
  Company Number: US-ASTRAZENECA-2017SE82539

PATIENT
  Age: 794 Month
  Sex: Female
  Weight: 49 kg

DRUGS (9)
  1. ULTIMATE 10 PROBIOTIC [Concomitant]
     Indication: GASTROINTESTINAL DISORDER
     Dosage: DAILY
     Route: 048
  2. ULTIMATE 10 PROBIOTIC [Concomitant]
     Indication: DYSPEPSIA
     Dosage: DAILY
     Route: 048
  3. VITAMIN D [Concomitant]
     Active Substance: CHOLECALCIFEROL
     Indication: BONE DISORDER
     Route: 048
     Dates: start: 2016
  4. LEVOTHYROXINE. [Concomitant]
     Active Substance: LEVOTHYROXINE
     Indication: THYROID DISORDER
     Route: 048
  5. PSYLLIUM HUSKS FIBER [Concomitant]
     Route: 048
     Dates: start: 2014
  6. LEVOTHYROXINE. [Concomitant]
     Active Substance: LEVOTHYROXINE
     Indication: THYROID DISORDER
     Route: 048
     Dates: start: 2014
  7. TUDORZA PRESSAIR [Suspect]
     Active Substance: ACLIDINIUM BROMIDE
     Indication: CHRONIC OBSTRUCTIVE PULMONARY DISEASE
     Dosage: 400 MCG, ONE PUFF TWICE A DAY,(ONE PUFF IN THE MORNING AND ONE PUFF LATER ON IN THE AFTERNOON)
     Route: 055
     Dates: start: 2014
  8. VITAMINS NOS [Concomitant]
     Active Substance: VITAMINS
     Indication: VITAMIN SUPPLEMENTATION
     Route: 048
     Dates: start: 2014
  9. VITAMIN D [Concomitant]
     Active Substance: CHOLECALCIFEROL
     Indication: IMMUNE SYSTEM DISORDER
     Route: 048
     Dates: start: 2016

REACTIONS (5)
  - Wrong technique in product usage process [Unknown]
  - Osteoporosis [Unknown]
  - Humidity intolerance [Unknown]
  - Drug dose omission [Unknown]
  - Product quality issue [Unknown]

NARRATIVE: CASE EVENT DATE: 201611
